FAERS Safety Report 9627977 (Version 3)
Quarter: 2013Q4

REPORT INFORMATION
  Report Type: Spontaneous
  Country: JP (occurrence: JP)
  Receive Date: 20131016
  Receipt Date: 20131029
  Transmission Date: 20140711
  Serious: Yes (Disabling)
  Sender: FDA-Public Use
  Company Number: JP-B.I. PHARMACEUTICALS,INC./RIDGEFIELD-2013-BI-27523NB

PATIENT
  Age: 82 Year
  Sex: Female

DRUGS (13)
  1. TRAZENTA [Suspect]
     Indication: TYPE 2 DIABETES MELLITUS
     Dosage: 5 MG
     Route: 048
     Dates: start: 20130613, end: 20130810
  2. JANUVIA [Suspect]
     Dosage: 50 MG
     Route: 048
     Dates: start: 20130411, end: 20130613
  3. LASIX / FUROSEMIDE [Concomitant]
     Indication: HYPERTENSION
     Dosage: 20 MG
     Route: 065
  4. DIGOXIN / DIGOXIN [Concomitant]
     Indication: ATRIAL FIBRILLATION
     Dosage: 0.125 MG
     Route: 065
  5. CYMBALTA / DULOXETINE HYDROCHLORIDE [Concomitant]
     Indication: ANGINA PECTORIS
     Dosage: 20 MG
     Route: 065
  6. SIGMART / NICORANDIL [Concomitant]
     Indication: ANGINA PECTORIS
     Dosage: 15 MG
     Route: 065
  7. MUCOSTA / REBAMIPIDE [Concomitant]
     Indication: PANIC DISORDER
     Dosage: DAILY DOSE:3 DF
     Route: 065
     Dates: end: 20130808
  8. LUDIOMIL / MAPROTILINE HYDROCHLORIDE [Concomitant]
     Indication: INSOMNIA
     Dosage: DAILY DOSE:3DF
     Route: 065
  9. AMOXAN / AMOXAPINE [Concomitant]
     Indication: DEPRESSION
     Dosage: DAILY DOSE:3DF
     Route: 065
     Dates: end: 20130808
  10. MYSLEE / ZOLPIDEM TARTRATE [Concomitant]
     Indication: INSOMNIA
     Dosage: 5 MG
     Route: 065
  11. LEXAPRO / ESCITALOPRAM OXALATE [Concomitant]
     Route: 065
  12. DEPAS / ETIZOLAM [Concomitant]
     Dosage: 0.5 MG
     Route: 065
  13. AMARYL / GLIMEPIRIDE [Concomitant]
     Indication: TYPE 2 DIABETES MELLITUS
     Dosage: 2 MG
     Route: 065

REACTIONS (1)
  - Hepatic function abnormal [Recovered/Resolved]
